FAERS Safety Report 25261475 (Version 1)
Quarter: 2025Q2

REPORT INFORMATION
  Report Type: Spontaneous
  Country: CN (occurrence: CN)
  Receive Date: 20250501
  Receipt Date: 20250501
  Transmission Date: 20250717
  Serious: Yes (Disabling, Other)
  Sender: ABBVIE
  Company Number: CN-ABBVIE-6254088

PATIENT
  Age: 60 Year
  Sex: Male
  Weight: 70 kg

DRUGS (10)
  1. VENETOCLAX [Suspect]
     Active Substance: VENETOCLAX
     Indication: Acute myeloid leukaemia
     Dosage: 100 MG
     Route: 048
     Dates: start: 20250402, end: 20250402
  2. VENETOCLAX [Suspect]
     Active Substance: VENETOCLAX
     Indication: Acute myeloid leukaemia
     Dosage: 200 MG
     Route: 048
     Dates: start: 20250403, end: 20250403
  3. VENETOCLAX [Suspect]
     Active Substance: VENETOCLAX
     Indication: Acute myeloid leukaemia
     Dosage: 400 MG
     Route: 048
     Dates: start: 20250404, end: 20250422
  4. ACLARUBICIN [Suspect]
     Active Substance: ACLARUBICIN
     Indication: Acute myeloid leukaemia
     Dosage: 20 MILLIGRAM
     Route: 041
     Dates: start: 20250406, end: 20250407
  5. CYTARABINE [Suspect]
     Active Substance: CYTARABINE
     Indication: Acute myeloid leukaemia
     Dosage: 36 MILLIGRAM
     Route: 058
     Dates: start: 20250403, end: 20250410
  6. SODIUM CHLORIDE [Concomitant]
     Active Substance: SODIUM CHLORIDE
     Indication: Vehicle solution use
     Dosage: 4 MILLILITER, 0.9%
     Route: 058
     Dates: start: 20250403, end: 20250410
  7. SODIUM CHLORIDE [Concomitant]
     Active Substance: SODIUM CHLORIDE
     Indication: Vehicle solution use
     Dosage: 250 MILLILITER, 0.9%
     Route: 041
     Dates: start: 20250406, end: 20250407
  8. STERILE WATER [Concomitant]
     Active Substance: WATER
     Indication: Vehicle solution use
     Dosage: 8 MILLILITER
     Route: 058
     Dates: start: 20250402, end: 20250408
  9. GRANULOCYTE COLONY-STIMULATING FACTOR NOS [Concomitant]
     Active Substance: GRANULOCYTE COLONY-STIMULATING FACTOR NOS
     Indication: Acute myeloid leukaemia
     Dosage: 600 MILLIGRAM
     Route: 058
     Dates: start: 20250402, end: 20250410
  10. AZACITIDINE [Suspect]
     Active Substance: AZACITIDINE
     Indication: Acute myeloid leukaemia
     Dosage: 135 MILLIGRAM
     Route: 058
     Dates: start: 20250402, end: 20250408

REACTIONS (4)
  - Granulocyte count decreased [Recovering/Resolving]
  - Haemoglobin decreased [Unknown]
  - Platelet count decreased [Recovering/Resolving]
  - White blood cell count decreased [Recovering/Resolving]

NARRATIVE: CASE EVENT DATE: 20250411
